FAERS Safety Report 18579054 (Version 1)
Quarter: 2020Q4

REPORT INFORMATION
  Report Type: Spontaneous
  Country: US (occurrence: US)
  Receive Date: 20201203
  Receipt Date: 20201203
  Transmission Date: 20210114
  Serious: Yes (Disabling)
  Sender: FDA-Public Use
  Company Number: None

PATIENT
  Age: 63 Year
  Sex: Female
  Weight: 63 kg

DRUGS (1)
  1. GENERIC 50 MG TRAMADOL TABLETS (ELONGATED OVAL TAB) [Suspect]
     Active Substance: TRAMADOL
     Indication: BREAKTHROUGH PAIN
     Dosage: ?          QUANTITY:2 TABLET(S);?
     Route: 048
     Dates: start: 20181204, end: 20201203

REACTIONS (3)
  - Product substitution issue [None]
  - Impaired quality of life [None]
  - Inadequate analgesia [None]

NARRATIVE: CASE EVENT DATE: 20191204
